FAERS Safety Report 4957070-1 (Version None)
Quarter: 2006Q1

REPORT INFORMATION
  Report Type: 
  Country: None (occurrence: None)
  Receive Date: 20060323
  Receipt Date: 20060310
  Transmission Date: 20060701
  Serious: Yes (Hospitalization)
  Sender: FDA-Public Use
  Company Number: 2006034552

PATIENT
  Age: 49 Year
  Sex: Female
  Weight: 95.2554 kg

DRUGS (10)
  1. DETROL LA [Suspect]
     Indication: HYPERTONIC BLADDER
     Dosage: 4 MG (4 MG, 1 IN 1 D) ORAL
     Route: 048
     Dates: start: 19990101
  2. SYNTHROID [Concomitant]
  3. RELAFEN [Concomitant]
  4. FLEXERIL [Concomitant]
  5. LASIX [Concomitant]
  6. LORCET-HD [Concomitant]
  7. DARVCET         (DEXTROPROPOXYPHENE NAPSILATE, PARACETAMOL) [Concomitant]
  8. MULTIVITAMIN [Concomitant]
  9. CHROMIUM PICOLINATE [Concomitant]
  10. PROCARDIA [Concomitant]

REACTIONS (14)
  - BLOOD PRESSURE INCREASED [None]
  - BURNING SENSATION [None]
  - DRUG INEFFECTIVE [None]
  - INCONTINENCE [None]
  - INCORRECT DOSE ADMINISTERED [None]
  - JOINT EFFUSION [None]
  - JOINT SWELLING [None]
  - MENISCUS LESION [None]
  - MICTURITION URGENCY [None]
  - NEUROPATHY [None]
  - OEDEMA PERIPHERAL [None]
  - POLLAKIURIA [None]
  - POSTOPERATIVE INFECTION [None]
  - SKIN INFECTION [None]
